FAERS Safety Report 17952447 (Version 5)
Quarter: 2020Q3

REPORT INFORMATION
  Report Type: Report from Study
  Country: US (occurrence: US)
  Receive Date: 20200626
  Receipt Date: 20200918
  Transmission Date: 20201103
  Serious: No
  Sender: FDA-Public Use
  Company Number: NVSC2020US180962

PATIENT
  Sex: Female

DRUGS (1)
  1. COSENTYX [Suspect]
     Active Substance: SECUKINUMAB
     Indication: PSORIASIS
     Dosage: 300 MG, Q4W (ONCE A WEEK FOR 5 WEEKS AND THEN Q 4)
     Route: 058
     Dates: start: 201911

REACTIONS (11)
  - Malaise [Unknown]
  - Anxiety [Unknown]
  - Contusion [Unknown]
  - Psoriasis [Unknown]
  - Pruritus [Unknown]
  - Headache [Unknown]
  - Abdominal discomfort [Unknown]
  - Mass [Unknown]
  - Pain in extremity [Unknown]
  - Arthralgia [Unknown]
  - Product storage error [Unknown]
